FAERS Safety Report 14861674 (Version 5)
Quarter: 2021Q1

REPORT INFORMATION
  Report Type: Spontaneous
  Country: US (occurrence: US)
  Receive Date: 20180508
  Receipt Date: 20210217
  Transmission Date: 20210419
  Serious: Yes (Other)
  Sender: FDA-Public Use
  Company Number: PHEH2018US016767

PATIENT
  Sex: Female

DRUGS (4)
  1. FLUOCINONIDE. [Concomitant]
     Active Substance: FLUOCINONIDE
     Indication: PRURITUS
     Dosage: UNK (FORMULATION: SOLUTION)
     Route: 065
  2. BENADRYL [Concomitant]
     Active Substance: DIPHENHYDRAMINE HYDROCHLORIDE
     Indication: PRURITUS
     Dosage: UNK
     Route: 065
  3. ALPRAZOLAM SANDOZ [Suspect]
     Active Substance: ALPRAZOLAM
     Indication: PANIC ATTACK
     Dosage: 0.5 MG, PRN
     Route: 065
  4. ALPRAZOLAM SANDOZ [Suspect]
     Active Substance: ALPRAZOLAM
     Dosage: 2 DF, PRN
     Route: 065

REACTIONS (6)
  - Psoriasis [Unknown]
  - Eye swelling [Unknown]
  - Product availability issue [Unknown]
  - Memory impairment [Unknown]
  - Product physical issue [Unknown]
  - Drug ineffective [Unknown]
